FAERS Safety Report 8065696-4 (Version None)
Quarter: 2012Q1

REPORT INFORMATION
  Report Type: 
  Country: None (occurrence: None)
  Receive Date: 20120124
  Receipt Date: 20120118
  Transmission Date: 20120608
  Serious: Yes (Other)
  Sender: FDA-Public Use
  Company Number: US-PFIZER INC-2012015483

PATIENT
  Sex: Female
  Weight: 66 kg

DRUGS (14)
  1. PREMARIN [Suspect]
     Indication: HYSTERECTOMY
     Dosage: 0.625 MG, DAILY
  2. ZOLOFT [Suspect]
     Indication: DEPRESSION
     Dosage: 100 MG, DAILY
  3. SERTRALINE HYDROCHLORIDE [Suspect]
     Indication: ANXIETY
  4. ZOLOFT [Suspect]
     Indication: PANIC ATTACK
  5. SERTRALINE HYDROCHLORIDE [Suspect]
     Indication: PANIC ATTACK
  6. OXYCODONE [Concomitant]
     Dosage: 10/325 MG, 4X/DAY
  7. FENTANYL [Concomitant]
     Indication: PAIN
     Dosage: 50 UG/24H
  8. PERCOCET [Concomitant]
     Dosage: 10/325 MG, 4X/DAY
  9. SERTRALINE HYDROCHLORIDE [Suspect]
     Indication: DEPRESSION
     Dosage: UNK
     Dates: start: 20120101
  10. NEURONTIN [Suspect]
     Indication: BACK INJURY
  11. TIZANIDINE [Concomitant]
     Dosage: 4 MG
     Dates: start: 20120103
  12. TIZANIDINE [Concomitant]
     Dosage: 2 MG
     Dates: end: 20120102
  13. ZOLOFT [Suspect]
     Indication: ANXIETY
  14. NEURONTIN [Suspect]
     Indication: PAIN IN EXTREMITY
     Dosage: 600 MG, 4X/DAY

REACTIONS (7)
  - IMPAIRED WORK ABILITY [None]
  - POST-TRAUMATIC STRESS DISORDER [None]
  - TOOTH INJURY [None]
  - NAUSEA [None]
  - MALAISE [None]
  - ROAD TRAFFIC ACCIDENT [None]
  - PAIN IN JAW [None]
